FAERS Safety Report 19771480 (Version 1)
Quarter: 2021Q3

REPORT INFORMATION
  Report Type: Spontaneous
  Country: US (occurrence: US)
  Receive Date: 20210829
  Receipt Date: 20210829
  Transmission Date: 20211014
  Serious: No
  Sender: FDA-Public Use
  Company Number: None

PATIENT
  Age: 42 Year
  Sex: Female

DRUGS (1)
  1. TALTZ [Suspect]
     Active Substance: IXEKIZUMAB
     Indication: PSORIASIS
     Dosage: ?          OTHER FREQUENCY:WEEK 1;?
     Route: 058
     Dates: start: 2021

REACTIONS (2)
  - Device physical property issue [None]
  - Wrong technique in device usage process [None]

NARRATIVE: CASE EVENT DATE: 20210420
